FAERS Safety Report 10833180 (Version 1)
Quarter: 2015Q1

REPORT INFORMATION
  Report Type: Report from Study
  Country: HU (occurrence: HU)
  Receive Date: 20150219
  Receipt Date: 20150219
  Transmission Date: 20150721
  Serious: Yes (Other)
  Sender: FDA-Public Use
  Company Number: US-ASTRAZENECA-2014SE90360

PATIENT
  Age: 54 Year
  Sex: Female

DRUGS (9)
  1. REXETIN [Concomitant]
     Active Substance: PAROXETINE HYDROCHLORIDE
  2. OLWEXYA [Concomitant]
  3. AMLODIPIN [Concomitant]
     Active Substance: AMLODIPINE BESYLATE
  4. ROSUVASTATIN [Concomitant]
     Active Substance: ROSUVASTATIN
  5. MILURIT [Concomitant]
     Active Substance: ALLOPURINOL
  6. KOMBOGLYZE [Suspect]
     Active Substance: METFORMIN HYDROCHLORIDE\SAXAGLIPTIN
     Indication: DIABETES MELLITUS
     Dosage: 1DF=2.5MG/850MG, EVERY DAY
     Route: 048
     Dates: start: 201408, end: 201410
  7. RIVOTRIL [Concomitant]
     Active Substance: CLONAZEPAM
  8. HUMULIN N2 [Concomitant]
  9. IVABRADIN [Concomitant]

REACTIONS (2)
  - Bone pain [Not Recovered/Not Resolved]
  - Renal disorder [Recovered/Resolved]

NARRATIVE: CASE EVENT DATE: 201409
